FAERS Safety Report 18181431 (Version 2)
Quarter: 2020Q3

REPORT INFORMATION
  Report Type: Report from Study
  Country: CO (occurrence: CO)
  Receive Date: 20200821
  Receipt Date: 20200828
  Transmission Date: 20201103
  Serious: Yes (Death, Hospitalization)
  Sender: FDA-Public Use
  Company Number: NVSC2020CO230865

PATIENT
  Age: 75 Year
  Sex: Male
  Weight: 75 kg

DRUGS (3)
  1. ACETYLSALICYLIC ACID [Concomitant]
     Active Substance: ASPIRIN
     Indication: PRODUCT USED FOR UNKNOWN INDICATION
     Dosage: 100 MG, QD
     Route: 048
  2. VOTRIENT [Suspect]
     Active Substance: PAZOPANIB HYDROCHLORIDE
     Indication: METASTATIC RENAL CELL CARCINOMA
     Dosage: 400 MG, (2 IN THE MORNING)
     Route: 048
     Dates: start: 20200423, end: 20200724
  3. LOSARTAN AND HYDROCHLOROTHIAZIDE [Concomitant]
     Active Substance: HYDROCHLOROTHIAZIDE\LOSARTAN POTASSIUM
     Indication: HYPERTENSION
     Dosage: UNK, QD
     Route: 048

REACTIONS (8)
  - Illness [Fatal]
  - Anuria [Unknown]
  - Pain [Unknown]
  - General physical health deterioration [Unknown]
  - Movement disorder [Unknown]
  - Fluid retention [Unknown]
  - Dysstasia [Unknown]
  - Decreased appetite [Unknown]

NARRATIVE: CASE EVENT DATE: 20200728
